FAERS Safety Report 24708387 (Version 4)
Quarter: 2025Q2

REPORT INFORMATION
  Report Type: Report from Study
  Country: CA (occurrence: CA)
  Receive Date: 20241207
  Receipt Date: 20250610
  Transmission Date: 20250717
  Serious: Yes (Other)
  Sender: BIOCON
  Company Number: CA-BIOCON BIOLOGICS LIMITED-BBL2024008022

PATIENT

DRUGS (1)
  1. HULIO [Suspect]
     Active Substance: ADALIMUMAB-FKJP
     Indication: Product used for unknown indication
     Route: 058
     Dates: start: 20240627

REACTIONS (6)
  - Wolff-Parkinson-White syndrome [Unknown]
  - Illness [Unknown]
  - Malaise [Unknown]
  - Inappropriate schedule of product administration [Unknown]
  - Product dose omission in error [Unknown]
  - Lack of injection site rotation [Unknown]
